FAERS Safety Report 6278119-2 (Version None)
Quarter: 2009Q3

REPORT INFORMATION
  Report Type: 
  Country: None (occurrence: None)
  Receive Date: 20090722
  Receipt Date: 20090721
  Transmission Date: 20100115
  Serious: Yes (Death, Hospitalization, Other)
  Sender: FDA-Public Use
  Company Number: US-PFIZER INC-2009206849

PATIENT
  Sex: Female
  Weight: 90.703 kg

DRUGS (1)
  1. REVATIO [Suspect]
     Dosage: 20 MG, 3X/DAY

REACTIONS (5)
  - DEATH [None]
  - GASTROENTERITIS [None]
  - NAUSEA [None]
  - VERTIGO [None]
  - VOMITING [None]
